FAERS Safety Report 4564837-0 (Version None)
Quarter: 2005Q1

REPORT INFORMATION
  Report Type: 
  Country: None (occurrence: None)
  Receive Date: 20050128
  Receipt Date: 20041215
  Transmission Date: 20050727
  Serious: Yes (Life-Threatening, Hospitalization, Disabling, Other)
  Sender: FDA-Public Use
  Company Number: US-MERCK-0412USA01993

PATIENT
  Age: 53 Year
  Sex: Female

DRUGS (3)
  1. VIOXX [Suspect]
     Indication: PAIN
     Route: 048
     Dates: start: 19990101, end: 20040901
  2. [THERAPY UNSPECIFIED] [Concomitant]
     Indication: DIABETES MELLITUS
     Route: 065
  3. [THERAPY UNSPECIFIED] [Concomitant]
     Indication: CARDIAC DISORDER
     Route: 065

REACTIONS (8)
  - ARTERIAL DISORDER [None]
  - CARDIAC DISORDER [None]
  - CARDIAC FAILURE CONGESTIVE [None]
  - CORONARY ARTERIAL STENT INSERTION [None]
  - GASTRIC DISORDER [None]
  - HEPATOMEGALY [None]
  - LIMB INJURY [None]
  - RENAL FAILURE [None]
